FAERS Safety Report 8360590-3 (Version None)
Quarter: 2012Q2

REPORT INFORMATION
  Report Type: 
  Country: None (occurrence: None)
  Receive Date: 20120515
  Receipt Date: 20120502
  Transmission Date: 20120825
  Serious: No
  Sender: FDA-Public Use
  Company Number: US-ASTRAZENECA-2009SE31943

PATIENT
  Age: 50 Year
  Sex: Female

DRUGS (7)
  1. SEROQUEL [Suspect]
     Dosage: 400-600 MG DAILY
     Route: 048
  2. SEROQUEL [Suspect]
     Indication: BIPOLAR DISORDER
     Route: 048
  3. PROMETRIUM [Concomitant]
  4. ESTRADIOL [Concomitant]
     Indication: PREMATURE MENOPAUSE
  5. WELLBUTRIN [Concomitant]
  6. WELLBUTRIN [Concomitant]
  7. WELLBUTRIN [Concomitant]

REACTIONS (7)
  - MIGRAINE [None]
  - INTENTIONAL DRUG MISUSE [None]
  - INSOMNIA [None]
  - DEPRESSED MOOD [None]
  - ALOPECIA [None]
  - FEELING COLD [None]
  - VOMITING [None]
